FAERS Safety Report 4704478-5 (Version None)
Quarter: 2005Q2

REPORT INFORMATION
  Report Type: 
  Country: None (occurrence: None)
  Receive Date: 20050630
  Receipt Date: 20050630
  Transmission Date: 20051028
  Serious: No
  Sender: FDA-Public Use
  Company Number: None

PATIENT
  Sex: Female
  Weight: 55 kg

DRUGS (4)
  1. GEMTUZUMAB  GMTZ [Suspect]
     Indication: ACUTE MYELOID LEUKAEMIA
     Dosage: SEE IMAGE
     Dates: start: 20050422
  2. CYTARABINE [Suspect]
     Dosage: SEE IMAGE
  3. DAUNORUBICIN [Suspect]
     Dosage: SEE IMAGE
     Route: 042
  4. ETOPOSIDE [Suspect]
     Dosage: SEE IMAGE
     Route: 042

REACTIONS (17)
  - ACUTE RESPIRATORY DISTRESS SYNDROME [None]
  - CHILLS [None]
  - ECHOCARDIOGRAM ABNORMAL [None]
  - EJECTION FRACTION DECREASED [None]
  - HAEMODIALYSIS [None]
  - HYPOKALAEMIA [None]
  - HYPOKINESIA [None]
  - LUNG DISORDER [None]
  - NEUTROPENIA [None]
  - NEUTROPHIL COUNT DECREASED [None]
  - PLEURAL EFFUSION [None]
  - PULMONARY OEDEMA [None]
  - PYREXIA [None]
  - RENAL FAILURE [None]
  - SEPTIC SHOCK [None]
  - STREPTOCOCCAL INFECTION [None]
  - TACHYPNOEA [None]
